FAERS Safety Report 5827675-4 (Version None)
Quarter: 2008Q3

REPORT INFORMATION
  Report Type: 
  Country: None (occurrence: None)
  Receive Date: 20080728
  Receipt Date: 20080717
  Transmission Date: 20090109
  Serious: Yes (Hospitalization)
  Sender: FDA-Public Use
  Company Number: 230190J08BRA

PATIENT
  Age: 15 Year
  Sex: Female

DRUGS (3)
  1. REBIF [Suspect]
     Dosage: 22 MCG, 3 IN 1 WEEKS, SUBCUTANEOUS
     Route: 058
     Dates: start: 20071108
  2. MANTIDAM (AMANTADINE HYDROCHLORIDE) [Concomitant]
  3. BUSPAR [Concomitant]

REACTIONS (2)
  - SYNCOPE [None]
  - WEIGHT DECREASED [None]
